FAERS Safety Report 10398530 (Version 3)
Quarter: 2014Q3

REPORT INFORMATION
  Report Type: Spontaneous
  Country: JP (occurrence: JP)
  Receive Date: 20140821
  Receipt Date: 20140919
  Transmission Date: 20150326
  Serious: Yes (Hospitalization, Other)
  Sender: FDA-Public Use
  Company Number: PHHY2014JP102601

PATIENT
  Age: 73 Year
  Sex: Female

DRUGS (3)
  1. ZOMETA [Suspect]
     Active Substance: ZOLEDRONIC ACID
     Indication: METASTASES TO BONE
     Dosage: 4 MG (PER ADMINISTRATION)
     Route: 041
     Dates: start: 20140717, end: 20140717
  2. IRESSA [Suspect]
     Active Substance: GEFITINIB
     Dosage: 250 MG, DAILY
     Route: 048
     Dates: start: 20140704
  3. IRESSA [Suspect]
     Active Substance: GEFITINIB
     Dosage: 250 MG, DAILY
     Route: 048
     Dates: end: 20140728

REACTIONS (9)
  - Ileus [Recovered/Resolved]
  - Aspartate aminotransferase increased [Recovered/Resolved]
  - Pyrexia [Recovered/Resolved]
  - Abdominal distension [Unknown]
  - Periodontal disease [Recovered/Resolved]
  - Hepatic function abnormal [Recovered/Resolved]
  - Alanine aminotransferase increased [Recovered/Resolved]
  - Diarrhoea [Recovered/Resolved]
  - Vomiting [Recovered/Resolved]

NARRATIVE: CASE EVENT DATE: 20140718
